FAERS Safety Report 17865537 (Version 1)
Quarter: 2020Q2

REPORT INFORMATION
  Report Type: Spontaneous
  Country: ES (occurrence: ES)
  Receive Date: 20200605
  Receipt Date: 20200605
  Transmission Date: 20200714
  Serious: Yes (Other)
  Sender: FDA-Public Use
  Company Number: ES-TEVA-2020-ES-1244226

PATIENT
  Age: 48 Year
  Sex: Female

DRUGS (7)
  1. ESOMEPRAZOL 20 MG 28 CAPSULAS [Concomitant]
  2. TOPAMAX 25 MG COMPRIMIDOS RECUBIERTOS CON PELICULA , 60 COMPRIMIDOS [Concomitant]
  3. HIPERTENE 20 MG COMPRIMIDOS , 28 COMPRIMIDOS [Concomitant]
  4. NAPROSYN 500 MG COMPRIMIDOS, 40 COMPRIMIDOS [Concomitant]
  5. ONDANSETRON (2575A) [Suspect]
     Active Substance: ONDANSETRON
     Dosage: NOT SPECIFIED
     Route: 065
     Dates: start: 20200521, end: 20200521
  6. ENANTYUM [Suspect]
     Active Substance: DEXKETOPROFEN TROMETAMOL
     Dosage: NOT SPECIFIED
     Route: 030
     Dates: start: 20200521, end: 20200521
  7. CYMBALTA 60 MG CAPSULAS DURAS GASTRORRESISTENTES, 28 CAPSULAS [Concomitant]

REACTIONS (3)
  - Pruritus [Unknown]
  - Lip oedema [Unknown]
  - Palatal oedema [Unknown]

NARRATIVE: CASE EVENT DATE: 20200521
